FAERS Safety Report 7121569-2 (Version None)
Quarter: 2010Q4

REPORT INFORMATION
  Report Type: 
  Country: None (occurrence: None)
  Receive Date: 20101119
  Receipt Date: 20101119
  Transmission Date: 20110411
  Serious: Yes (Hospitalization)
  Sender: FDA-Public Use
  Company Number: None

PATIENT
  Sex: Female
  Weight: 64 kg

DRUGS (9)
  1. ALIMTA [Suspect]
     Indication: LUNG CANCER METASTATIC
     Dosage: 400MG/M2 DAYS 1 AND 15 IV
     Route: 042
     Dates: start: 20101025
  2. TAXOTERE [Suspect]
     Indication: LUNG CANCER METASTATIC
     Dosage: 30MG/M2 DAYS 1 AND 15 IV
     Route: 042
     Dates: start: 20101025
  3. PROCHLORPERAZINE MALEATE [Concomitant]
  4. OXYCONTIN [Concomitant]
  5. PAXIL [Concomitant]
  6. CLONAZEPAM [Concomitant]
  7. WARFARIN [Concomitant]
  8. AUGMENTIN [Concomitant]
  9. ENOXAPARIN SODIUM [Concomitant]

REACTIONS (2)
  - LIVER FUNCTION TEST ABNORMAL [None]
  - PYREXIA [None]
